FAERS Safety Report 5278217-6 (Version None)
Quarter: 2007Q1

REPORT INFORMATION
  Report Type: 
  Country: None (occurrence: None)
  Receive Date: 20070328
  Receipt Date: 20070316
  Transmission Date: 20070707
  Serious: Yes (Other)
  Sender: FDA-Public Use
  Company Number: PHBS2007GB04917

PATIENT
  Age: 50 Year
  Sex: Male

DRUGS (3)
  1. CYCLOSPORINE [Suspect]
     Indication: RENAL TRANSPLANT
     Dosage: 200 MG, BID
     Route: 065
  2. CARBAMAZEPINE [Suspect]
     Route: 065
  3. AZATHIOPRINE [Suspect]
     Indication: RENAL TRANSPLANT
     Dosage: 50 MG, QD
     Route: 065

REACTIONS (6)
  - FOLLICULITIS [None]
  - HYPERTRICHOSIS [None]
  - PRURITUS [None]
  - RASH PAPULAR [None]
  - SEBACEOUS HYPERPLASIA [None]
  - SQUAMOUS CELL CARCINOMA OF SKIN [None]
